FAERS Safety Report 18521566 (Version 1)
Quarter: 2020Q4

REPORT INFORMATION
  Report Type: Spontaneous
  Country: US (occurrence: US)
  Receive Date: 20201118
  Receipt Date: 20201118
  Transmission Date: 20210114
  Serious: Yes (Hospitalization, Other)
  Sender: FDA-Public Use
  Company Number: None

PATIENT
  Age: 84 Year
  Sex: Female

DRUGS (15)
  1. PIMECROLIMUS TOP CREAM [Concomitant]
  2. DICLOFENAC TOP GEL, [Concomitant]
  3. FERROUS SULFATE. [Concomitant]
     Active Substance: FERROUS SULFATE
  4. PANTOPRAZOLE [Concomitant]
     Active Substance: PANTOPRAZOLE
  5. TRIAMCINOLONE TOP CREAM [Concomitant]
  6. HYDROCORTISONE TOP OINT [Concomitant]
  7. LEVOTHYROXINE. [Suspect]
     Active Substance: LEVOTHYROXINE
  8. TRAMADOL. [Suspect]
     Active Substance: TRAMADOL
  9. METOPROLOL. [Suspect]
     Active Substance: METOPROLOL
  10. ALCOLOMETASONE TO OINT [Concomitant]
  11. LORATADINE. [Concomitant]
     Active Substance: LORATADINE
  12. WARFARIN [Suspect]
     Active Substance: WARFARIN
  13. OPSUMIT [Suspect]
     Active Substance: MACITENTAN
     Indication: PULMONARY ARTERIAL HYPERTENSION
     Route: 048
     Dates: start: 201510
  14. FUROSEMIDE. [Suspect]
     Active Substance: FUROSEMIDE
  15. ALLOPURINOL. [Suspect]
     Active Substance: ALLOPURINOL

REACTIONS (5)
  - Fall [None]
  - Acute kidney injury [None]
  - Skin laceration [None]
  - Head injury [None]
  - Accident [None]

NARRATIVE: CASE EVENT DATE: 20201027
